FAERS Safety Report 8128146-5 (Version None)
Quarter: 2012Q1

REPORT INFORMATION
  Report Type: 
  Country: None (occurrence: None)
  Receive Date: 20120210
  Receipt Date: 20120124
  Transmission Date: 20120608
  Serious: Yes (Hospitalization, Other)
  Sender: FDA-Public Use
  Company Number: SE-PFIZER INC-K201000539

PATIENT
  Sex: Female

DRUGS (13)
  1. NITROMEX [Concomitant]
     Dosage: UNK
  2. ESOMEPRAZOLE MAGNESIUM [Concomitant]
     Dosage: UNK
  3. FOSAMAX [Concomitant]
     Dosage: UNK
  4. ASPIRIN [Concomitant]
     Dosage: UNK
  5. KALCIPOS [Concomitant]
     Dosage: UNK
  6. FUROSEMIDE [Concomitant]
     Dosage: UNK
  7. METOPROLOL TARTRATE [Suspect]
     Indication: CARDIAC FAILURE
     Dosage: 25 MG, 1X/DAY
     Route: 048
     Dates: end: 20100919
  8. LOPERAMIDE [Concomitant]
     Dosage: UNK
  9. ACETAMINOPHEN [Concomitant]
     Dosage: UNK
  10. IMDUR [Concomitant]
     Dosage: UNK
  11. ALTACE [Suspect]
     Indication: OEDEMA DUE TO CARDIAC DISEASE
     Dosage: 1.25 MG, 1X/DAY
     Dates: start: 20100920
  12. PREDNISOLONE [Concomitant]
     Dosage: UNK
  13. ALTACE [Suspect]
     Indication: CARDIAC FAILURE
     Dosage: 2.5 MG, 1X/DAY
     Route: 048
     Dates: end: 20100919

REACTIONS (6)
  - HYPOTENSION [None]
  - ERYTHEMA [None]
  - OEDEMA PERIPHERAL [None]
  - OVERDOSE [None]
  - PAIN IN EXTREMITY [None]
  - ERYSIPELAS [None]
